FAERS Safety Report 5503592-4 (Version None)
Quarter: 2007Q4

REPORT INFORMATION
  Report Type: 
  Country: None (occurrence: None)
  Receive Date: 20071029
  Receipt Date: 20071015
  Transmission Date: 20080405
  Serious: No
  Sender: FDA-Public Use
  Company Number: 2007P1000681

PATIENT
  Age: 51 Year
  Sex: Male

DRUGS (6)
  1. BUSULFAN (BUSULFAN) [Suspect]
     Indication: STEM CELL TRANSPLANT
     Dosage: 30 ML;QD;IV
     Route: 042
     Dates: start: 20070713, end: 20070716
  2. CYCLOPHOSPHAMIDE [Concomitant]
  3. VALPROATE SODIUM [Concomitant]
  4. NEUPOGEN [Concomitant]
  5. METHOTREXATE [Concomitant]
  6. TACROLIMUS [Concomitant]

REACTIONS (3)
  - STAPHYLOCOCCAL SEPSIS [None]
  - SUPRAVENTRICULAR TACHYCARDIA [None]
  - VENOOCCLUSIVE LIVER DISEASE [None]
